FAERS Safety Report 14970952 (Version 1)
Quarter: 2018Q2

REPORT INFORMATION
  Report Type: Spontaneous
  Country: US (occurrence: US)
  Receive Date: 20180514
  Receipt Date: 20180514
  Transmission Date: 20180711
  Serious: Yes (Other)
  Sender: FDA-Public Use
  Company Number: None

PATIENT
  Age: 67 Year
  Sex: Female

DRUGS (1)
  1. SPRYCEL [Suspect]
     Active Substance: DASATINIB
     Indication: CHRONIC MYELOID LEUKAEMIA
     Route: 048
     Dates: start: 20180508, end: 20180513

REACTIONS (6)
  - Gingival bleeding [None]
  - Loss of personal independence in daily activities [None]
  - Oropharyngeal pain [None]
  - Feeling of body temperature change [None]
  - Nausea [None]
  - Epistaxis [None]

NARRATIVE: CASE EVENT DATE: 20180512
